FAERS Safety Report 6412521-0 (Version None)
Quarter: 2009Q4

REPORT INFORMATION
  Report Type: 
  Country: None (occurrence: None)
  Receive Date: 20091023
  Receipt Date: 20090626
  Transmission Date: 20100525
  Serious: Yes (Hospitalization)
  Sender: FDA-Public Use
  Company Number: US-BRISTOL-MYERS SQUIBB COMPANY-14666234

PATIENT
  Age: 47 Year
  Sex: Female
  Weight: 122 kg

DRUGS (3)
  1. KENALOG-40 [Suspect]
     Indication: PAIN
     Dosage: STRENGTH: 40MG/ML 2ML,ONE TIME DOSE, 03JUN09
     Route: 008
     Dates: start: 20090603, end: 20090603
  2. ISOVUE-128 [Suspect]
     Indication: PAIN
     Dosage: ISOVUE-300; 2 ML ONE TIME DOSE
     Route: 008
     Dates: start: 20090603, end: 20090603
  3. BUPIVACAINE [Concomitant]
     Dosage: STR:0.5%

REACTIONS (3)
  - DYSSTASIA [None]
  - FEELING ABNORMAL [None]
  - HYPOAESTHESIA [None]
